FAERS Safety Report 12761676 (Version 1)
Quarter: 2016Q3

REPORT INFORMATION
  Report Type: Spontaneous
  Country: US (occurrence: US)
  Receive Date: 20160920
  Receipt Date: 20160920
  Transmission Date: 20161109
  Serious: Yes (Other)
  Sender: FDA-Public Use
  Company Number: US-TEVA-694094USA

PATIENT
  Age: 63 Year
  Sex: Female
  Weight: 59.02 kg

DRUGS (1)
  1. LETROZOLE. [Suspect]
     Active Substance: LETROZOLE
     Indication: BREAST CANCER
     Route: 065
     Dates: start: 201608, end: 2016

REACTIONS (9)
  - Apparent death [Unknown]
  - Vision blurred [Unknown]
  - Discomfort [Unknown]
  - Orthostatic hypotension [Unknown]
  - Cerebrovascular accident [Unknown]
  - Dizziness [Unknown]
  - Eye irritation [Unknown]
  - Skin discolouration [Unknown]
  - Coordination abnormal [Unknown]

NARRATIVE: CASE EVENT DATE: 201608
